FAERS Safety Report 8300219 (Version 2)
Quarter: 2013Q2

REPORT INFORMATION
  Report Type: Spontaneous
  Country: US (occurrence: US)
  Receive Date: 20111219
  Receipt Date: 20130502
  Transmission Date: 20140414
  Serious: Yes (Other)
  Sender: FDA-Public Use
  Company Number: US-ASTRAZENECA-2011SE62247

PATIENT
  Age: 65 Year
  Sex: Female
  Weight: 61.2 kg

DRUGS (7)
  1. CRESTOR [Suspect]
     Indication: BLOOD CHOLESTEROL INCREASED
     Route: 048
     Dates: start: 20110815
  2. CRESTOR [Suspect]
     Indication: BLOOD CHOLESTEROL INCREASED
     Route: 048
     Dates: start: 201110
  3. CRESTOR [Suspect]
     Indication: BLOOD CHOLESTEROL INCREASED
     Route: 048
     Dates: start: 2012, end: 201303
  4. CRESTOR [Suspect]
     Indication: BLOOD CHOLESTEROL INCREASED
     Route: 048
     Dates: start: 201304
  5. ZANAX [Concomitant]
     Indication: ANXIETY
     Dosage: XANAX
  6. ZANAX [Concomitant]
     Indication: ANXIETY
     Dosage: APRAZOLEM, 0.25 MG BID PRN
  7. ZOLOF [Concomitant]

REACTIONS (7)
  - Fall [Recovering/Resolving]
  - Post-traumatic neck syndrome [Recovering/Resolving]
  - Skin burning sensation [Unknown]
  - Gastritis [Unknown]
  - Dizziness [Recovered/Resolved]
  - Pruritus [Recovered/Resolved]
  - Muscle tightness [Unknown]
